FAERS Safety Report 4896241-X (Version None)
Quarter: 2006Q1

REPORT INFORMATION
  Report Type: 
  Country: None (occurrence: None)
  Receive Date: 20060126
  Receipt Date: 20060113
  Transmission Date: 20060701
  Serious: Yes (Other)
  Sender: FDA-Public Use
  Company Number: 2006009205

PATIENT
  Sex: Male
  Weight: 90.7194 kg

DRUGS (10)
  1. CAVERJECT [Suspect]
     Indication: ERECTILE DYSFUNCTION
     Dosage: 20 MCG (20 MCG)
     Dates: start: 19960101
  2. VIAGRA [Suspect]
     Indication: ERECTILE DYSFUNCTION
     Dosage: 100 MG (100 MG), ORAL
     Route: 048
     Dates: start: 20000101
  3. FLAXSEED OIL (LINSEED OIL) [Concomitant]
  4. SOYA LECITHIN (LECITHINUM SOYA) [Concomitant]
  5. PSYLLIUM HUSK (ISPAGHULA HUSK) [Concomitant]
  6. ACIDOPHILUS (LACTOBACILLUS ACIDOPHILUS) [Concomitant]
  7. FISH OIL (FISH OIL) [Concomitant]
  8. COMPLEX (NICOTINAMIDE, PYRIDOXINE HYDROCHLORIDE, RIBOFLAVIN, THIAMINE [Concomitant]
  9. CYANOCOBALAMIN [Concomitant]
  10. CALMS FORTE (HERBAL NOS) [Concomitant]

REACTIONS (6)
  - COLOUR BLINDNESS [None]
  - DIVERTICULITIS [None]
  - DRUG INEFFECTIVE [None]
  - MENISCUS LESION [None]
  - POOR QUALITY DRUG ADMINISTERED [None]
  - VISUAL DISTURBANCE [None]
